FAERS Safety Report 12126974 (Version 1)
Quarter: 2016Q1

REPORT INFORMATION
  Report Type: Spontaneous
  Country: US (occurrence: US)
  Receive Date: 20160229
  Receipt Date: 20160229
  Transmission Date: 20160526
  Serious: No
  Sender: FDA-Public Use
  Company Number: US-BAYER-2016-039132

PATIENT
  Age: 81 Year
  Sex: Female
  Weight: 78.91 kg

DRUGS (5)
  1. MIRALAX [Suspect]
     Active Substance: POLYETHYLENE GLYCOL 3350
     Indication: CONSTIPATION
     Dosage: 1 DF, QOD
     Route: 048
     Dates: start: 201602
  2. VITAMIN D [Concomitant]
     Active Substance: CHOLECALCIFEROL
  3. PROBIOTICA [Concomitant]
     Active Substance: PROBIOTICS NOS
  4. OMEPRAZOLE. [Concomitant]
     Active Substance: OMEPRAZOLE
  5. VITAMIN C [Concomitant]
     Active Substance: ASCORBIC ACID

REACTIONS (1)
  - Circumstance or information capable of leading to medication error [None]

NARRATIVE: CASE EVENT DATE: 201602
